FAERS Safety Report 22801169 (Version 3)
Quarter: 2024Q1

REPORT INFORMATION
  Report Type: Report from Study
  Country: US (occurrence: US)
  Receive Date: 20230809
  Receipt Date: 20240223
  Transmission Date: 20240410
  Serious: Yes (Hospitalization)
  Sender: FDA-Public Use
  Company Number: US-ABBVIE-5358193

PATIENT
  Age: 80 Year
  Sex: Male

DRUGS (3)
  1. VENCLEXTA [Suspect]
     Active Substance: VENETOCLAX
     Indication: Plasma cell myeloma
     Dosage: FORM STRENGTH 100 MILLIGRAMS?TWO TABLETS BY MOUTH 200 MILLIGRAMS DAILY?FIRST ADMIN DATE FEB 2024
     Route: 048
  2. VENCLEXTA [Suspect]
     Active Substance: VENETOCLAX
     Indication: Plasma cell myeloma
     Dosage: FORM STRENGTH 100 MILLIGRAMS?TAKE FOUR TABLETS PO ONCE DAILY?START: 2024
     Route: 050
  3. VENCLEXTA [Suspect]
     Active Substance: VENETOCLAX
     Indication: Plasma cell myeloma
     Dosage: FORM STRENGTH 100 MILLIGRAMS?TWO TABLETS BY MOUTH 200 MILLIGRAMS DAILY
     Route: 048
     Dates: end: 2024

REACTIONS (3)
  - Bursitis [Unknown]
  - Pneumonia [Recovered/Resolved]
  - Off label use [Unknown]

NARRATIVE: CASE EVENT DATE: 20240130
